FAERS Safety Report 19230403 (Version 1)
Quarter: 2021Q2

REPORT INFORMATION
  Report Type: Spontaneous
  Country: US (occurrence: US)
  Receive Date: 20210507
  Receipt Date: 20210507
  Transmission Date: 20210717
  Serious: Yes (Other)
  Sender: FDA-Public Use
  Company Number: US-STRIDES ARCOLAB LIMITED-2021SP005209

PATIENT

DRUGS (2)
  1. RANITIDINE. [Suspect]
     Active Substance: RANITIDINE
     Dosage: UNK, (RANITIDINE)
     Route: 065
     Dates: start: 2016, end: 2019
  2. RANITIDINE. [Suspect]
     Active Substance: RANITIDINE
     Indication: PRODUCT USED FOR UNKNOWN INDICATION
     Dosage: UNK, (ZANTAC)
     Route: 065
     Dates: start: 2016, end: 2019

REACTIONS (2)
  - Gastrointestinal carcinoma [Unknown]
  - Colorectal cancer [Unknown]

NARRATIVE: CASE EVENT DATE: 201909
